FAERS Safety Report 24737606 (Version 1)
Quarter: 2024Q4

REPORT INFORMATION
  Report Type: Spontaneous
  Country: DE (occurrence: DE)
  Receive Date: 20241216
  Receipt Date: 20241216
  Transmission Date: 20250115
  Serious: Yes (Hospitalization)
  Sender: SANDOZ
  Company Number: DE-ABBVIE-6033677

PATIENT
  Sex: Female

DRUGS (14)
  1. DICLOFENAC [Suspect]
     Active Substance: DICLOFENAC
     Indication: Product used for unknown indication
     Dosage: UNK
     Route: 065
  2. HUMIRA [Suspect]
     Active Substance: ADALIMUMAB
     Indication: Product used for unknown indication
     Dosage: 40 MG
     Route: 058
     Dates: start: 20180928, end: 20190104
  3. HUMIRA [Suspect]
     Active Substance: ADALIMUMAB
     Dosage: 40 MG
     Route: 058
     Dates: start: 20190312
  4. ADALIMUMAB [Concomitant]
     Active Substance: ADALIMUMAB
     Indication: Product used for unknown indication
     Dosage: 40 MG
     Route: 065
     Dates: start: 20190312, end: 20190702
  5. ADALIMUMAB [Concomitant]
     Active Substance: ADALIMUMAB
     Dosage: 40 MG
     Route: 065
     Dates: start: 20190813, end: 20200302
  6. ETORICOXIB [Concomitant]
     Active Substance: ETORICOXIB
     Indication: Product used for unknown indication
     Dosage: 90 MG
     Route: 065
     Dates: start: 20181217, end: 20190615
  7. HYRIMOZ [Concomitant]
     Active Substance: ADALIMUMAB-ADAZ
     Indication: Product used for unknown indication
     Dosage: 40 MG
     Route: 065
     Dates: start: 20200316, end: 20200830
  8. IBUPROFEN [Concomitant]
     Active Substance: IBUPROFEN
     Indication: Product used for unknown indication
     Dosage: LAST ADMINISTRATION DATE: 2016
     Route: 065
     Dates: start: 20160101, end: 2016
  9. IBUPROFEN [Concomitant]
     Active Substance: IBUPROFEN
     Dosage: 600 MG
     Route: 065
     Dates: start: 20230201
  10. IBUPROFEN [Concomitant]
     Active Substance: IBUPROFEN
     Dosage: 800 MG
     Route: 065
     Dates: start: 2016, end: 20181126
  11. IDACIO [Concomitant]
     Active Substance: ADALIMUMAB-AACF
     Indication: Product used for unknown indication
     Dosage: 40 MG
     Route: 065
     Dates: start: 20200913, end: 20210201
  12. IDACIO [Concomitant]
     Active Substance: ADALIMUMAB-AACF
     Dosage: 40 MG
     Route: 065
     Dates: start: 20210603, end: 20210716
  13. IDACIO [Concomitant]
     Active Substance: ADALIMUMAB-AACF
     Dosage: 40 MG
     Route: 065
     Dates: start: 20210905, end: 20220715
  14. IDACIO [Concomitant]
     Active Substance: ADALIMUMAB-AACF
     Dosage: 40 MG
     Route: 065
     Dates: start: 20221111, end: 20230928

REACTIONS (1)
  - Atrial fibrillation [Unknown]
